FAERS Safety Report 9686405 (Version 1)
Quarter: 2013Q4

REPORT INFORMATION
  Report Type: Spontaneous
  Country: CN (occurrence: None)
  Receive Date: 20131108
  Receipt Date: 20131108
  Transmission Date: 20140711
  Serious: Yes (Hospitalization)
  Sender: FDA-Public Use
  Company Number: VAL_02806_2013

PATIENT
  Age: 70 Year
  Sex: Male
  Weight: 65 kg

DRUGS (3)
  1. LOTENSIN [Suspect]
     Indication: HYPERTENSION
     Route: 042
     Dates: start: 20111229, end: 20120102
  2. PIRACETAM [Suspect]
     Indication: PRODUCT USED FOR UNKNOWN INDICATION
     Route: 042
     Dates: start: 20111229, end: 20120102
  3. ALPROSTADIL [Suspect]
     Indication: PRODUCT USED FOR UNKNOWN INDICATION
     Dates: end: 20120102

REACTIONS (3)
  - Pruritus [None]
  - Rash erythematous [None]
  - Rash maculovesicular [None]
